FAERS Safety Report 4481243-8 (Version None)
Quarter: 2004Q4

REPORT INFORMATION
  Report Type: 
  Country: None (occurrence: None)
  Receive Date: 20040923
  Receipt Date: 20040803
  Transmission Date: 20050328
  Serious: No
  Sender: FDA-Public Use
  Company Number: USA030229243

PATIENT
  Age: 85 Year
  Sex: Female
  Weight: 51 kg

DRUGS (6)
  1. FORTEO [Suspect]
     Indication: OSTEOPOROSIS
     Dosage: 20 UG/1 DAY
  2. CALCIUM [Concomitant]
  3. FOSAMAX [Concomitant]
  4. MULTI-VITAMINS [Concomitant]
  5. PRAVACHOL [Concomitant]
  6. PROZAC [Concomitant]

REACTIONS (2)
  - INJECTION SITE HAEMORRHAGE [None]
  - OVERDOSE [None]
